FAERS Safety Report 10290684 (Version 1)
Quarter: 2014Q3

REPORT INFORMATION
  Report Type: Spontaneous
  Country: US (occurrence: None)
  Receive Date: 20140708
  Receipt Date: 20140708
  Transmission Date: 20150326
  Serious: Yes (Death)
  Sender: FDA-Public Use
  Company Number: None

PATIENT
  Age: 65 Year
  Sex: Male
  Weight: 148.6 kg

DRUGS (1)
  1. PHYTONADIONE. [Suspect]
     Active Substance: PHYTONADIONE
     Indication: DEEP VEIN THROMBOSIS
     Dates: start: 20140208, end: 20140208

REACTIONS (5)
  - International normalised ratio abnormal [None]
  - Cardio-respiratory arrest [None]
  - Blood pressure systolic increased [None]
  - Heart rate increased [None]
  - Pulseless electrical activity [None]

NARRATIVE: CASE EVENT DATE: 20140209
